FAERS Safety Report 11910057 (Version 3)
Quarter: 2016Q1

REPORT INFORMATION
  Report Type: Spontaneous
  Country: IT (occurrence: IT)
  Receive Date: 20160112
  Receipt Date: 20160204
  Transmission Date: 20160526
  Serious: Yes (Hospitalization)
  Sender: FDA-Public Use
  Company Number: IT-009507513-1601ITA001279

PATIENT
  Age: 63 Year
  Sex: Female

DRUGS (7)
  1. FUROSEMIDE. [Concomitant]
     Active Substance: FUROSEMIDE
  2. ENALAPRIL MALEATE. [Concomitant]
     Active Substance: ENALAPRIL MALEATE
     Indication: HYPERTENSION
  3. REBETOL [Suspect]
     Active Substance: RIBAVIRIN
     Indication: CHRONIC HEPATITIS C
     Dosage: 1200 MG, DAILY
     Route: 048
     Dates: start: 20151006
  4. SOVALDI [Suspect]
     Active Substance: SOFOSBUVIR
     Indication: CHRONIC HEPATITIS C
     Dosage: 800 MG, DAILY
     Route: 048
     Dates: start: 20151006
  5. TOPIRAMATE. [Concomitant]
     Active Substance: TOPIRAMATE
     Indication: ESSENTIAL TREMOR
  6. ATENOLOL. [Concomitant]
     Active Substance: ATENOLOL
     Indication: HYPERTENSION
  7. PRAMIPEXOLE. [Concomitant]
     Active Substance: PRAMIPEXOLE
     Indication: ESSENTIAL TREMOR

REACTIONS (1)
  - Pulmonary embolism [Recovering/Resolving]

NARRATIVE: CASE EVENT DATE: 20151102
